FAERS Safety Report 26028306 (Version 1)
Quarter: 2025Q4

REPORT INFORMATION
  Report Type: Report from Study
  Country: US (occurrence: US)
  Receive Date: 20251111
  Receipt Date: 20251111
  Transmission Date: 20260118
  Serious: Yes (Hospitalization)
  Sender: TAIHO ONCOLOGY INC
  Company Number: US-TAIHOP-2025-011334

PATIENT
  Sex: Male

DRUGS (1)
  1. INQOVI [Suspect]
     Active Substance: CEDAZURIDINE\DECITABINE
     Indication: Illness
     Dosage: 135 MG (DECITABINE 35 MG AND CEDAZURIDINE 100 MG)?CYCLE UNKNOWN
     Route: 048

REACTIONS (1)
  - Malaise [Unknown]
